FAERS Safety Report 10330194 (Version 1)
Quarter: 2014Q3

REPORT INFORMATION
  Report Type: Spontaneous
  Country: CA (occurrence: CA)
  Receive Date: 20140721
  Receipt Date: 20140721
  Transmission Date: 20150326
  Serious: Yes (Hospitalization, Other)
  Sender: FDA-Public Use
  Company Number: CA-B.I. PHARMACEUTICALS,INC./RIDGEFIELD-2014-BI-33163CN

PATIENT
  Age: 71 Year
  Sex: Female
  Weight: 100 kg

DRUGS (7)
  1. PERINDOPRIL [Concomitant]
     Active Substance: PERINDOPRIL
     Route: 065
  2. METFORMIN [Concomitant]
     Active Substance: METFORMIN HYDROCHLORIDE
     Route: 065
  3. LEVEMIR PENFILL [Concomitant]
     Active Substance: INSULIN DETEMIR
     Route: 058
  4. HYDROQUINONE. [Concomitant]
     Active Substance: HYDROQUINONE
     Route: 065
  5. PRADAXA [Suspect]
     Active Substance: DABIGATRAN ETEXILATE MESYLATE
     Indication: PRODUCT USED FOR UNKNOWN INDICATION
     Dosage: 300 MG
     Route: 048
  6. LASIX [Concomitant]
     Active Substance: FUROSEMIDE
     Route: 065
  7. NORVASC [Concomitant]
     Active Substance: AMLODIPINE BESYLATE
     Route: 065

REACTIONS (2)
  - Spinal cord injury cauda equina [Unknown]
  - Spinal haematoma [Unknown]
